FAERS Safety Report 7248319-3 (Version None)
Quarter: 2011Q1

REPORT INFORMATION
  Report Type: 
  Country: None (occurrence: None)
  Receive Date: 20110127
  Receipt Date: 20110124
  Transmission Date: 20110831
  Serious: Yes (Other)
  Sender: FDA-Public Use
  Company Number: US-PFIZER INC-2011016904

PATIENT
  Sex: Male
  Weight: 108 kg

DRUGS (3)
  1. PROTONIX [Suspect]
     Dosage: 40 MG, 1X/DAY
     Route: 048
     Dates: start: 20090601
  2. GLUCOPHAGE [Concomitant]
     Indication: DIABETES MELLITUS
     Dosage: 500 MG, 2X/DAY
     Route: 048
  3. LASIX [Concomitant]
     Dosage: 40 MG, 2X/DAY
     Route: 048

REACTIONS (4)
  - CELLULITIS [None]
  - HYPERLIPIDAEMIA [None]
  - DRUG SCREEN FALSE POSITIVE [None]
  - HYPERTENSION [None]
